FAERS Safety Report 4997504-X (Version None)
Quarter: 2006Q2

REPORT INFORMATION
  Report Type: 
  Country: None (occurrence: None)
  Receive Date: 20060509
  Receipt Date: 20050202
  Transmission Date: 20061013
  Serious: Yes (Hospitalization)
  Sender: FDA-Public Use
  Company Number: US-MERCK-0502USA00360

PATIENT
  Age: 76 Year
  Sex: Male
  Weight: 114 kg

DRUGS (1)
  1. VIOXX [Suspect]
     Indication: ARTHRITIS
     Route: 048
     Dates: start: 20010201, end: 20010501

REACTIONS (11)
  - ANAEMIA [None]
  - ANEURYSM [None]
  - AORTIC ANEURYSM [None]
  - CEREBROVASCULAR ACCIDENT [None]
  - COUGH [None]
  - DIZZINESS [None]
  - HEMIPARESIS [None]
  - MALAISE [None]
  - MYELOPATHY [None]
  - NEUROPATHY PERIPHERAL [None]
  - OVERDOSE [None]
